FAERS Safety Report 25475190 (Version 1)
Quarter: 2025Q2

REPORT INFORMATION
  Report Type: Spontaneous
  Country: DE (occurrence: DE)
  Receive Date: 20250624
  Receipt Date: 20250624
  Transmission Date: 20250716
  Serious: Yes (Other)
  Sender: ALEXION PHARMACEUTICALS
  Company Number: DE-ASTRAZENECA-202506GLO014193DE

PATIENT
  Age: 74 Year

DRUGS (2)
  1. OSIMERTINIB [Suspect]
     Active Substance: OSIMERTINIB
     Indication: Non-small cell lung cancer
     Dosage: 80 MILLIGRAM, QD
     Route: 065
  2. SELPERCATINIB [Suspect]
     Active Substance: SELPERCATINIB
     Indication: Non-small cell lung cancer
     Dosage: 80 MILLIGRAM, BID
     Route: 065

REACTIONS (12)
  - Malignant neoplasm progression [Unknown]
  - Malignant pleural effusion [Unknown]
  - Metastases to lymph nodes [Unknown]
  - Acquired gene mutation [Unknown]
  - Drug resistance [Unknown]
  - Diarrhoea [Unknown]
  - Dry skin [Unknown]
  - Dermatitis acneiform [Unknown]
  - Fatigue [Unknown]
  - Hypertension [Unknown]
  - Dry mouth [Unknown]
  - Blood creatinine increased [Unknown]
